FAERS Safety Report 13089716 (Version 1)
Quarter: 2016Q4

REPORT INFORMATION
  Report Type: Spontaneous
  Country: US (occurrence: US)
  Receive Date: 20161231
  Receipt Date: 20161231
  Transmission Date: 20170207
  Serious: Yes (Hospitalization)
  Sender: FDA-Public Use
  Company Number: None

PATIENT
  Age: 73 Year
  Sex: Male
  Weight: 133.4 kg

DRUGS (1)
  1. WARFARIN [Suspect]
     Active Substance: WARFARIN
     Indication: MITRAL VALVE REPLACEMENT
     Dosage: MG PO
     Route: 048
     Dates: start: 19971021, end: 20161224

REACTIONS (4)
  - Gastric haemorrhage [None]
  - International normalised ratio abnormal [None]
  - Haematuria [None]
  - Haemorrhage [None]

NARRATIVE: CASE EVENT DATE: 20161217
